FAERS Safety Report 7183502-7 (Version None)
Quarter: 2010Q4

REPORT INFORMATION
  Report Type: 
  Country: None (occurrence: None)
  Receive Date: 20101222
  Receipt Date: 20101208
  Transmission Date: 20110411
  Serious: Yes (Hospitalization)
  Sender: FDA-Public Use
  Company Number: PHHY2010TR83804

PATIENT
  Age: 80 Year
  Sex: Female

DRUGS (2)
  1. ZOLEDRONIC ACID [Suspect]
     Indication: MULTIPLE MYELOMA
     Dosage: UNK
  2. DEXAMETHASONE [Concomitant]
     Indication: MULTIPLE MYELOMA
     Dosage: UNK

REACTIONS (14)
  - ABASIA [None]
  - ACTIVITIES OF DAILY LIVING IMPAIRED [None]
  - APHAGIA [None]
  - BRADYKINESIA [None]
  - DYSPHONIA [None]
  - HYPOCALCAEMIA [None]
  - HYPOKINESIA [None]
  - MUSCLE RIGIDITY [None]
  - NAUSEA [None]
  - PARKINSONISM [None]
  - RABBIT SYNDROME [None]
  - SPEECH DISORDER [None]
  - TREMOR [None]
  - VOMITING [None]
